FAERS Safety Report 9848391 (Version 1)
Quarter: 2013Q4

REPORT INFORMATION
  Report Type: Spontaneous
  Country: US (occurrence: None)
  Receive Date: 20131224
  Receipt Date: 20131224
  Transmission Date: 20140711
  Serious: Yes (Other)
  Sender: FDA-Public Use
  Company Number: PHEH2013US018571

PATIENT
  Age: 53 Year
  Sex: Male

DRUGS (6)
  1. MYFORTIC [Suspect]
     Route: 048
     Dates: start: 201003
  2. ASACOL HD (MESALAZINE) [Concomitant]
  3. PANTOPRAZOLE (PANTOPRAZOLE) [Concomitant]
  4. PROGRAF (TACROLIMUS) [Concomitant]
  5. PREDNISONE (PREDNISONE) [Concomitant]
  6. CARVEDILOL (CARVEDILOL) [Concomitant]

REACTIONS (4)
  - Colitis [None]
  - Blood iron decreased [None]
  - Rectal haemorrhage [None]
  - Diarrhoea [None]
